FAERS Safety Report 12620879 (Version 1)
Quarter: 2016Q3

REPORT INFORMATION
  Report Type: Spontaneous
  Country: US (occurrence: None)
  Receive Date: 20160803
  Receipt Date: 20160803
  Transmission Date: 20161109
  Serious: Yes (Death)
  Sender: FDA-Public Use
  Company Number: None

PATIENT
  Age: 77 Year
  Sex: Male
  Weight: 86.18 kg

DRUGS (2)
  1. HUMIRA [Suspect]
     Active Substance: ADALIMUMAB
     Indication: RHEUMATOID ARTHRITIS
     Dosage: EVERY OTHER WEEK HUMIRA INJECTION BY PEN
     Dates: start: 20130717, end: 20150830
  2. HUMIRA [Suspect]
     Active Substance: ADALIMUMAB
     Indication: ARTHRALGIA
     Dosage: EVERY OTHER WEEK HUMIRA INJECTION BY PEN
     Dates: start: 20130717, end: 20150830

REACTIONS (7)
  - Pneumonia [None]
  - Septic shock [None]
  - Pulmonary tuberculosis [None]
  - Liver disorder [None]
  - Fall [None]
  - Renal disorder [None]
  - Respiratory failure [None]

NARRATIVE: CASE EVENT DATE: 20160109
